FAERS Safety Report 8942652 (Version 1)
Quarter: 2012Q4

REPORT INFORMATION
  Report Type: 
  Country: US (occurrence: US)
  Receive Date: 20121204
  Receipt Date: 20121204
  Transmission Date: 20130627
  Serious: Yes (Other)
  Sender: FDA-Public Use
  Company Number: US-BAYER-2012-125986

PATIENT
  Sex: Female

DRUGS (4)
  1. YAZ [Suspect]
     Dosage: UNK
     Dates: start: 20090512
  2. YASMIN [Suspect]
     Dosage: UNK
     Dates: start: 20090512
  3. OCELLA [Suspect]
     Dosage: UNK
     Dates: start: 20090512
  4. GIANVI [Suspect]
     Dosage: UNK
     Dates: start: 20090512

REACTIONS (8)
  - Gallbladder disorder [None]
  - Deep vein thrombosis [None]
  - Injury [None]
  - Pain [None]
  - General physical health deterioration [None]
  - Emotional distress [None]
  - Anxiety [None]
  - Pain [None]
